FAERS Safety Report 25604100 (Version 3)
Quarter: 2025Q3

REPORT INFORMATION
  Report Type: Spontaneous
  Country: IN (occurrence: IN)
  Receive Date: 20250725
  Receipt Date: 20250812
  Transmission Date: 20251021
  Serious: Yes (Hospitalization, Other)
  Sender: CIPLA
  Company Number: IN-CIPLA LTD.-2025IN08966

PATIENT

DRUGS (4)
  1. LEVALBUTEROL [Suspect]
     Active Substance: LEVALBUTEROL
     Indication: Asthma
     Route: 065
     Dates: start: 20240203
  2. BUDESONIDE\FORMOTEROL FUMARATE [Suspect]
     Active Substance: BUDESONIDE\FORMOTEROL FUMARATE
     Indication: Asthma
     Route: 065
     Dates: start: 20250203
  3. TIXYLIX [GLYCEROL] [Concomitant]
     Indication: Cough
     Dosage: 5 MILLILITER, BID (MORNING AND EVENING)
     Route: 065
     Dates: start: 20250705, end: 20250710
  4. LEVOCETIRIZINE DIHYDROCHLORIDE [Concomitant]
     Active Substance: LEVOCETIRIZINE DIHYDROCHLORIDE
     Indication: Sneezing
     Dosage: 5 MILLILITER, QD (EVERY DAY NIGHT)
     Route: 065
     Dates: start: 20250705, end: 20250710

REACTIONS (8)
  - Pneumonia [Recovered/Resolved]
  - Adverse event [Unknown]
  - Asthma [Unknown]
  - Bacterial test positive [Unknown]
  - Device use issue [Unknown]
  - Device colour issue [Unknown]
  - Drug ineffective [Unknown]
  - Device delivery system issue [Unknown]

NARRATIVE: CASE EVENT DATE: 20240101
